FAERS Safety Report 9781897 (Version 2)
Quarter: 2014Q1

REPORT INFORMATION
  Report Type: Spontaneous
  Country: US (occurrence: US)
  Receive Date: 20131225
  Receipt Date: 20140129
  Transmission Date: 20141002
  Serious: No
  Sender: FDA-Public Use
  Company Number: US-B.I. PHARMACEUTICALS,INC./RIDGEFIELD-2013-BI-42074BP

PATIENT
  Age: 76 Year
  Sex: Male
  Weight: 113 kg

DRUGS (3)
  1. PRADAXA [Suspect]
     Indication: ATRIAL FIBRILLATION
     Dosage: 300 MG
     Route: 048
     Dates: start: 20110206, end: 20130606
  2. TOPROL [Concomitant]
     Indication: ATRIAL FIBRILLATION
     Dosage: FORMULATION: XL, DOSE: 25
     Dates: start: 2007
  3. LISINOPRIL HCT [Concomitant]
     Indication: HYPERTENSION
     Dosage: DOSE: 20/12.5
     Dates: start: 2007

REACTIONS (2)
  - Fatigue [Recovered/Resolved]
  - Malaise [Recovered/Resolved]
